FAERS Safety Report 10079890 (Version 5)
Quarter: 2014Q3

REPORT INFORMATION
  Report Type: Spontaneous
  Country: IE (occurrence: IE)
  Receive Date: 20140415
  Receipt Date: 20140904
  Transmission Date: 20150326
  Serious: Yes (Other)
  Sender: FDA-Public Use
  Company Number: IE-PFIZER INC-2014085436

PATIENT
  Age: 15 Year
  Sex: Male
  Weight: 65.1 kg

DRUGS (1)
  1. GENOTROPIN [Suspect]
     Active Substance: SOMATROPIN
     Indication: GROWTH HORMONE DEFICIENCY
     Dosage: 5.3 MG, 1X/DAY
     Dates: start: 20140318, end: 20140325

REACTIONS (4)
  - Asthenia [Recovered/Resolved]
  - Pulse abnormal [Recovered/Resolved]
  - Epilepsy [Recovered/Resolved]
  - Haemangioma [Recovered/Resolved]

NARRATIVE: CASE EVENT DATE: 201403
